FAERS Safety Report 14804744 (Version 1)
Quarter: 2018Q2

REPORT INFORMATION
  Report Type: Spontaneous
  Country: CN (occurrence: CN)
  Receive Date: 20180425
  Receipt Date: 20180425
  Transmission Date: 20180711
  Serious: Yes (Hospitalization, Other)
  Sender: FDA-Public Use
  Company Number: CN-ELI_LILLY_AND_COMPANY-CN201804008491

PATIENT
  Age: 81 Year
  Sex: Male
  Weight: 65 kg

DRUGS (2)
  1. HUMALOG MIX75/25 [Suspect]
     Active Substance: INSULIN LISPRO
     Indication: DIABETES MELLITUS
     Dosage: 8 U, TID
     Route: 058
     Dates: start: 2013
  2. LANTUS [Concomitant]
     Active Substance: INSULIN GLARGINE
     Indication: PRODUCT USED FOR UNKNOWN INDICATION

REACTIONS (8)
  - Chronic gastritis [Unknown]
  - Renal atrophy [Unknown]
  - Cerebral infarction [Unknown]
  - Drug dose omission [Unknown]
  - Oedema [Unknown]
  - Anaemia [Unknown]
  - Blood glucose increased [Unknown]
  - Renal failure [Unknown]

NARRATIVE: CASE EVENT DATE: 201505
